FAERS Safety Report 4467621-1 (Version None)
Quarter: 2004Q4

REPORT INFORMATION
  Report Type: 
  Country: None (occurrence: None)
  Receive Date: 20041004
  Receipt Date: 20040922
  Transmission Date: 20050328
  Serious: Yes (Hospitalization)
  Sender: FDA-Public Use
  Company Number: S04-USA-06024-01

PATIENT
  Age: 33 Year
  Sex: Male

DRUGS (5)
  1. LEXAPRO [Suspect]
     Indication: DEPRESSION
     Dosage: 20 MG QD PO
     Route: 048
     Dates: end: 20040819
  2. LEXAPRO [Suspect]
     Indication: DEPRESSION
     Dosage: 10 MG QD PO
     Route: 048
     Dates: start: 20040501
  3. DILANTIN [Concomitant]
  4. SEROQUEL [Concomitant]
  5. DEPAKOTE [Concomitant]

REACTIONS (17)
  - ABNORMAL BEHAVIOUR [None]
  - AFFECTIVE DISORDER [None]
  - AGGRESSION [None]
  - AGITATION [None]
  - BLOOD PRESSURE INCREASED [None]
  - CONDITION AGGRAVATED [None]
  - DYSKINESIA [None]
  - HALLUCINATION, VISUAL [None]
  - HEART RATE INCREASED [None]
  - INTENTIONAL SELF-INJURY [None]
  - INTERMITTENT EXPLOSIVE DISORDER [None]
  - MAJOR DEPRESSION [None]
  - PERSONALITY CHANGE DUE TO A GENERAL MEDICAL CONDITION [None]
  - SELF MUTILATION [None]
  - SOCIAL AVOIDANT BEHAVIOUR [None]
  - SUICIDAL IDEATION [None]
  - WOUND [None]
